FAERS Safety Report 21641651 (Version 1)
Quarter: 2022Q4

REPORT INFORMATION
  Report Type: Spontaneous
  Country: ID (occurrence: ID)
  Receive Date: 20221125
  Receipt Date: 20221125
  Transmission Date: 20230112
  Serious: Yes (Hospitalization, Other)
  Sender: FDA-Public Use
  Company Number: ID-BoehringerIngelheim-2022-BI-203654

PATIENT
  Age: 55 Year
  Sex: Female
  Weight: 93 kg

DRUGS (18)
  1. EMPAGLIFLOZIN\METFORMIN HYDROCHLORIDE [Suspect]
     Active Substance: EMPAGLIFLOZIN\METFORMIN HYDROCHLORIDE
     Indication: Cardiac failure
     Dosage: 12.5/500 MG OD
     Dates: start: 202202
  2. EMPAGLIFLOZIN\METFORMIN HYDROCHLORIDE [Suspect]
     Active Substance: EMPAGLIFLOZIN\METFORMIN HYDROCHLORIDE
     Dosage: 12.5/500 MG OD
     Dates: start: 202203
  3. FUROSEMIDE [Suspect]
     Active Substance: FUROSEMIDE
     Indication: Product used for unknown indication
     Dosage: INITIAL DOSE
     Dates: start: 202202, end: 202202
  4. FUROSEMIDE [Suspect]
     Active Substance: FUROSEMIDE
     Dosage: DECREASED DOSE
     Dates: start: 202202, end: 202203
  5. VALSARTAN [Suspect]
     Active Substance: VALSARTAN
     Indication: Product used for unknown indication
     Dates: start: 202202
  6. VALSARTAN [Suspect]
     Active Substance: VALSARTAN
     Dates: start: 202203
  7. AMIODARONE [Concomitant]
     Active Substance: AMIODARONE
     Indication: Product used for unknown indication
     Dates: start: 202202
  8. AMIODARONE [Concomitant]
     Active Substance: AMIODARONE
     Dates: start: 202203
  9. BISOPROLOL [Concomitant]
     Active Substance: BISOPROLOL
     Indication: Product used for unknown indication
     Dates: start: 202202
  10. BISOPROLOL [Concomitant]
     Active Substance: BISOPROLOL
     Dates: start: 202203
  11. BISOPROLOL [Concomitant]
     Active Substance: BISOPROLOL
     Dosage: DOSE WAS DECREASED FROM 2,5 MG OD TO UNKNOWN
     Dates: start: 202207
  12. SPIRONOLACTONE [Concomitant]
     Active Substance: SPIRONOLACTONE
     Indication: Product used for unknown indication
     Dates: start: 202202
  13. SPIRONOLACTONE [Concomitant]
     Active Substance: SPIRONOLACTONE
  14. HEPARIN [Concomitant]
     Active Substance: HEPARIN SODIUM
     Indication: Product used for unknown indication
     Dates: start: 202202, end: 202202
  15. RIVAROXABAN [Concomitant]
     Active Substance: RIVAROXABAN
     Indication: Product used for unknown indication
     Dates: start: 202202
  16. RIVAROXABAN [Concomitant]
     Active Substance: RIVAROXABAN
     Dates: start: 202203
  17. ATORVASTATIN [Concomitant]
     Active Substance: ATORVASTATIN
     Indication: Product used for unknown indication
     Dates: start: 202202
  18. GLICLAZIDE [Concomitant]
     Active Substance: GLICLAZIDE
     Indication: Product used for unknown indication
     Dates: start: 202203

REACTIONS (4)
  - Cardiac ablation [Unknown]
  - Hypotension [Unknown]
  - Intentional product use issue [Unknown]
  - Dizziness [Unknown]

NARRATIVE: CASE EVENT DATE: 20220201
